FAERS Safety Report 6072574-9 (Version None)
Quarter: 2009Q1

REPORT INFORMATION
  Report Type: 
  Country: None (occurrence: None)
  Receive Date: 20090210
  Receipt Date: 20090129
  Transmission Date: 20090719
  Serious: Yes (Other)
  Sender: FDA-Public Use
  Company Number: AU-WYE-G03017809

PATIENT
  Age: 71 Year
  Sex: Female
  Weight: 59 kg

DRUGS (4)
  1. PRISTIQ [Suspect]
     Indication: DEPRESSION
     Route: 048
     Dates: start: 20080101
  2. PRISTIQ [Suspect]
     Dosage: 50MG TABLETS X 8 STAT
     Route: 048
     Dates: start: 20090118, end: 20090118
  3. TEMAZEPAM [Suspect]
     Dosage: ^TEMAZEPAM X 6 STAT^
     Route: 048
     Dates: start: 20090118, end: 20090118
  4. VALIUM [Suspect]
     Dosage: ^VALIUM X 4 STAT^
     Route: 048
     Dates: start: 20090118, end: 20090118

REACTIONS (2)
  - INTENTIONAL OVERDOSE [None]
  - SUICIDE ATTEMPT [None]
